FAERS Safety Report 5733619-6 (Version None)
Quarter: 2008Q2

REPORT INFORMATION
  Report Type: 
  Country: None (occurrence: None)
  Receive Date: 20080509
  Receipt Date: 20080428
  Transmission Date: 20081010
  Serious: Yes (Other)
  Sender: FDA-Public Use
  Company Number: US-PFIZER INC-2008037719

PATIENT
  Sex: Female
  Weight: 77.1 kg

DRUGS (9)
  1. LYRICA [Suspect]
     Indication: FIBROMYALGIA
  2. PHENOL [Concomitant]
  3. MOBIC [Concomitant]
  4. ZOLOFT [Concomitant]
  5. NEXIUM [Concomitant]
  6. ASTELIN [Concomitant]
     Route: 045
  7. QVAR 40 [Concomitant]
  8. FLEXERIL [Concomitant]
  9. LIPITOR [Concomitant]

REACTIONS (1)
  - NARCOLEPSY [None]
